FAERS Safety Report 25229190 (Version 1)
Quarter: 2025Q2

REPORT INFORMATION
  Report Type: Spontaneous
  Country: FR (occurrence: FR)
  Receive Date: 20250423
  Receipt Date: 20250423
  Transmission Date: 20250716
  Serious: Yes (Other)
  Sender: ROCHE
  Company Number: None

PATIENT
  Age: 15 Year
  Sex: Female
  Weight: 88 kg

DRUGS (1)
  1. XOLAIR [Suspect]
     Active Substance: OMALIZUMAB
     Indication: Urticaria chronic
     Dosage: 300 MG, QMO
     Route: 058
     Dates: start: 20250110

REACTIONS (2)
  - Heavy menstrual bleeding [Not Recovered/Not Resolved]
  - Polymenorrhoea [Not Recovered/Not Resolved]
